FAERS Safety Report 22393970 (Version 1)
Quarter: 2023Q2

REPORT INFORMATION
  Report Type: Spontaneous
  Country: DE (occurrence: DE)
  Receive Date: 20230601
  Receipt Date: 20230601
  Transmission Date: 20230721
  Serious: Yes (Other)
  Sender: FDA-Public Use
  Company Number: DE-UCBSA-2023027679

PATIENT
  Sex: Female

DRUGS (7)
  1. VIMPAT [Suspect]
     Active Substance: LACOSAMIDE
     Indication: Generalised tonic-clonic seizure
     Dosage: 200 MILLIGRAM, ONCE DAILY (QD), IN MORNING
  2. VIMPAT [Suspect]
     Active Substance: LACOSAMIDE
     Dosage: 300 MILLIGRAM, ONCE DAILY (QD), IN EVENING
  3. KEPPRA [Suspect]
     Active Substance: LEVETIRACETAM
     Indication: Generalised tonic-clonic seizure
     Dosage: 1500 MILLIGRAM, 2X/DAY (BID) (IN MORNING AND EVENING)
  4. KEPPRA [Suspect]
     Active Substance: LEVETIRACETAM
     Dosage: 1500-1000-1500 MILLIGRAM
  5. LAMICTAL [Suspect]
     Active Substance: LAMOTRIGINE
     Indication: Generalised tonic-clonic seizure
     Dosage: 250 MILLIGRAM, 2X/DAY (BID) (IN MORNING AND EVENING)
  6. LAMICTAL [Suspect]
     Active Substance: LAMOTRIGINE
     Dosage: 250-50-250 MILLIGRAM
  7. FOLIC ACID [Suspect]
     Active Substance: FOLIC ACID
     Indication: Product used for unknown indication
     Dosage: 400 MICROGRAM
     Dates: start: 20230509

REACTIONS (2)
  - Seizure [Unknown]
  - Maternal exposure during pregnancy [Unknown]
